FAERS Safety Report 9722027 (Version 1)
Quarter: 2013Q4

REPORT INFORMATION
  Report Type: Other
  Country: DE (occurrence: DE)
  Receive Date: 20131202
  Receipt Date: 20131202
  Transmission Date: 20140711
  Serious: Yes (Life-Threatening, Hospitalization, Congenital Anomaly, Other)
  Sender: FDA-Public Use
  Company Number: DE-LUPIN PHARMACEUTICALS INC.-E2B_00001464

PATIENT
  Age: 1 Day
  Sex: Male
  Weight: 2.8 kg

DRUGS (13)
  1. LAMOTRIGIN [Suspect]
     Indication: EPILEPSY
     Route: 064
     Dates: start: 20120211
  2. LAMOTRIGIN [Suspect]
     Route: 064
     Dates: end: 20121029
  3. EPIRUBICIN [Suspect]
     Indication: BREAST CANCER
     Route: 064
     Dates: start: 20120914, end: 20120914
  4. EPIRUBICIN [Suspect]
     Route: 064
     Dates: start: 20121005, end: 20121005
  5. CYCLOPHOSPHAMIDE [Suspect]
     Indication: BREAST CANCER
     Route: 064
     Dates: start: 20120914, end: 20120914
  6. CYCLOPHOSPHAMIDE [Suspect]
     Route: 064
     Dates: start: 20121005, end: 20121005
  7. FOLSAURE [Concomitant]
     Indication: PROPHYLAXIS OF NEURAL TUBE DEFECT
     Route: 064
     Dates: start: 20120211, end: 20121029
  8. FILGRASTIM [Concomitant]
     Indication: CHEMOTHERAPY
     Route: 064
     Dates: start: 20120914, end: 20120914
  9. FILGRASTIM [Concomitant]
     Route: 064
     Dates: start: 20121006, end: 20121006
  10. DEXAMETHASONE [Concomitant]
     Indication: PROPHYLAXIS OF NAUSEA AND VOMITING
     Route: 064
     Dates: start: 20120914, end: 20120914
  11. DEXAMETHASONE [Concomitant]
     Route: 064
     Dates: start: 20121005, end: 20121005
  12. ONDANSETRON [Concomitant]
     Indication: PROPHYLAXIS OF NAUSEA AND VOMITING
     Route: 064
     Dates: start: 20120914, end: 20120914
  13. ONDANSETRON [Concomitant]
     Route: 064
     Dates: start: 20121005, end: 20121005

REACTIONS (6)
  - Hypospadias [Not Recovered/Not Resolved]
  - Pulmonary artery stenosis congenital [Unknown]
  - Atrial septal defect [Not Recovered/Not Resolved]
  - Neonatal respiratory distress syndrome [Recovered/Resolved]
  - Premature baby [Unknown]
  - Foetal exposure during pregnancy [Unknown]
